FAERS Safety Report 14495060 (Version 1)
Quarter: 2018Q1

REPORT INFORMATION
  Report Type: Spontaneous
  Country: CA (occurrence: CA)
  Receive Date: 20180206
  Receipt Date: 20180206
  Transmission Date: 20180509
  Serious: Yes (Other)
  Sender: FDA-Public Use
  Company Number: CA-BAUSCH-BL-2018-003222

PATIENT
  Age: 67 Year
  Sex: Female

DRUGS (1)
  1. VERTEPORFIN (NVO) [Suspect]
     Active Substance: VERTEPORFIN
     Indication: NEOVASCULAR AGE-RELATED MACULAR DEGENERATION
     Dosage: 30 ML SOLUTION (6 MG/M2)
     Route: 042

REACTIONS (2)
  - Subretinal fluid [Recovered/Resolved]
  - Maculopathy [Recovered/Resolved]
